FAERS Safety Report 22856508 (Version 4)
Quarter: 2023Q4

REPORT INFORMATION
  Report Type: Spontaneous
  Country: US (occurrence: US)
  Receive Date: 20230823
  Receipt Date: 20231215
  Transmission Date: 20240109
  Serious: No
  Sender: FDA-Public Use
  Company Number: US-BIOGEN-2023BI01222273

PATIENT
  Age: 39 Year
  Sex: Female

DRUGS (1)
  1. TYSABRI [Suspect]
     Active Substance: NATALIZUMAB
     Indication: Multiple sclerosis
     Route: 050
     Dates: start: 20230818, end: 202312

REACTIONS (5)
  - Inappropriate schedule of product administration [Unknown]
  - Multiple sclerosis relapse [Unknown]
  - Confusional state [Unknown]
  - Crying [Unknown]
  - Fatigue [Unknown]

NARRATIVE: CASE EVENT DATE: 20230801
